FAERS Safety Report 10888390 (Version 4)
Quarter: 2015Q2

REPORT INFORMATION
  Report Type: Spontaneous
  Country: IT (occurrence: IT)
  Receive Date: 20150305
  Receipt Date: 20150610
  Transmission Date: 20150821
  Serious: Yes (Death, Hospitalization)
  Sender: FDA-Public Use
  Company Number: IT-SA-2015SA025282

PATIENT
  Age: 65 Year
  Sex: Male

DRUGS (3)
  1. GEMZAR [Concomitant]
     Active Substance: GEMCITABINE HYDROCHLORIDE
     Indication: PANCREATIC CARCINOMA
     Dosage: POWDER FOR SOLUTION FOR INFUSION
  2. ABRAXANE [Concomitant]
     Active Substance: PACLITAXEL
     Indication: PANCREATIC CARCINOMA
     Dosage: POWDER FOR SUSPENSION FOR INFUSION - INTRAVENOUS USE
     Route: 042
     Dates: start: 20141028, end: 20141217
  3. CLEXANE [Suspect]
     Active Substance: ENOXAPARIN SODIUM
     Indication: HAEMORRHOIDS
     Dosage: DOSE: 4000 IU IN THOUSAND
     Route: 058
     Dates: start: 20141212, end: 20150105

REACTIONS (3)
  - Haemorrhage [Fatal]
  - Disseminated intravascular coagulation [Fatal]
  - Thrombocytopenia [Fatal]

NARRATIVE: CASE EVENT DATE: 20150107
